FAERS Safety Report 12079533 (Version 1)
Quarter: 2016Q1

REPORT INFORMATION
  Report Type: Spontaneous
  Country: US (occurrence: None)
  Receive Date: 20160212
  Receipt Date: 20160212
  Transmission Date: 20160526
  Serious: Yes (Hospitalization, Other)
  Sender: FDA-Public Use
  Company Number: None

PATIENT
  Age: 53 Year
  Sex: Female
  Weight: 59.88 kg

DRUGS (9)
  1. AMPHETAMINE SALTS [Suspect]
     Active Substance: AMPHETAMINE ASPARTATE\AMPHETAMINE SULFATE\DEXTROAMPHETAMINE SACCHARATE\DEXTROAMPHETAMINE SULFATE
     Indication: FATIGUE
     Route: 048
     Dates: start: 20150501, end: 20160209
  2. VITAMIN D [Concomitant]
     Active Substance: CHOLECALCIFEROL
  3. FLEXERIL [Concomitant]
     Active Substance: CYCLOBENZAPRINE HYDROCHLORIDE
  4. LAMICTAL [Concomitant]
     Active Substance: LAMOTRIGINE
  5. B12 INJECTIONS [Concomitant]
  6. SYNTHROID [Concomitant]
     Active Substance: LEVOTHYROXINE SODIUM
  7. HYDROCODONE [Concomitant]
     Active Substance: HYDROCODONE
  8. OMEGA 3 FISH OIL [Concomitant]
     Active Substance: FISH OIL\OMEGA-3 FATTY ACIDS
  9. LUNESTA [Concomitant]
     Active Substance: ESZOPICLONE

REACTIONS (14)
  - Neck pain [None]
  - Depression [None]
  - Photosensitivity reaction [None]
  - Drug ineffective [None]
  - Pain [None]
  - Lethargy [None]
  - Product formulation issue [None]
  - Product substitution issue [None]
  - Irritability [None]
  - Somnolence [None]
  - Apathy [None]
  - Headache [None]
  - Hyperaesthesia [None]
  - Insomnia [None]

NARRATIVE: CASE EVENT DATE: 20160211
